FAERS Safety Report 6915453-4 (Version None)
Quarter: 2010Q3

REPORT INFORMATION
  Report Type: 
  Country: None (occurrence: None)
  Receive Date: 20100809
  Receipt Date: 20100707
  Transmission Date: 20110219
  Serious: No
  Sender: FDA-Public Use
  Company Number: US-ABBOTT-10P-163-0652654-00

PATIENT
  Age: 50 Year
  Sex: Female
  Weight: 65.376 kg

DRUGS (5)
  1. DEPAKOTE ER [Suspect]
     Indication: PANIC ATTACK
     Route: 048
     Dates: start: 20100510
  2. DEPAKOTE ER [Suspect]
     Indication: MENTAL DISORDER
  3. REMERON [Suspect]
     Indication: INSOMNIA
  4. XANAX [Concomitant]
     Indication: PANIC ATTACK
     Dates: start: 20100201
  5. HALCION [Concomitant]

REACTIONS (3)
  - EYE PAIN [None]
  - GASTROOESOPHAGEAL REFLUX DISEASE [None]
  - TINNITUS [None]
